FAERS Safety Report 8179162-9 (Version None)
Quarter: 2012Q1

REPORT INFORMATION
  Report Type: 
  Country: None (occurrence: None)
  Receive Date: 20120302
  Receipt Date: 20120227
  Transmission Date: 20120608
  Serious: No
  Sender: FDA-Public Use
  Company Number: US-PFIZER INC-2011246992

PATIENT
  Sex: Female
  Weight: 52.1 kg

DRUGS (4)
  1. IBUPROFEN (ADVIL) [Suspect]
     Indication: HEADACHE
     Dosage: 400 MG, 2X/DAY
     Route: 048
     Dates: start: 20111009, end: 20111010
  2. IBUPROFEN [Suspect]
     Dosage: 200 MG, UNK
  3. ACETAMINOPHEN [Concomitant]
     Dosage: UNK
  4. AMLODIPINE BESILATE [Concomitant]
     Indication: HYPERTENSION
     Dosage: 2.5 MG, DAILY

REACTIONS (5)
  - PRURITUS GENERALISED [None]
  - RASH ERYTHEMATOUS [None]
  - RASH [None]
  - ABDOMINAL DISCOMFORT [None]
  - EPISTAXIS [None]
